FAERS Safety Report 16717490 (Version 24)
Quarter: 2020Q3

REPORT INFORMATION
  Report Type: Report from Study
  Country: US (occurrence: US)
  Receive Date: 20190819
  Receipt Date: 20200723
  Transmission Date: 20201102
  Serious: Yes (Hospitalization)
  Sender: FDA-Public Use
  Company Number: US-ACTELION-A-NJ2019-192312

PATIENT
  Age: 72 Year
  Sex: Female
  Weight: 62.59 kg

DRUGS (25)
  1. MAGNESIUM OXIDE. [Concomitant]
     Active Substance: MAGNESIUM OXIDE
  2. IRON [Concomitant]
     Active Substance: IRON
  3. DELSYM [Concomitant]
     Active Substance: DEXTROMETHORPHAN
     Dosage: UNK
     Dates: start: 20200224
  4. VELETRI [Suspect]
     Active Substance: EPOPROSTENOL
     Dosage: 15 NG/KG, PER MIN
     Route: 042
  5. GABAPENTIN. [Concomitant]
     Active Substance: GABAPENTIN
  6. RANITIDINE. [Concomitant]
     Active Substance: RANITIDINE
  7. REQUIP [Concomitant]
     Active Substance: ROPINIROLE HYDROCHLORIDE
  8. INSULIN LISPRO [Concomitant]
     Active Substance: INSULIN LISPRO
     Dosage: UNK
     Dates: start: 20200224
  9. OPSUMIT [Suspect]
     Active Substance: MACITENTAN
     Indication: PULMONARY ARTERIAL HYPERTENSION
     Dosage: 10 MG, QD
     Route: 048
     Dates: start: 20190521
  10. GLIPIZIDE. [Concomitant]
     Active Substance: GLIPIZIDE
  11. JANUVIA [Concomitant]
     Active Substance: SITAGLIPTIN PHOSPHATE
  12. LEVOTHYROXINE. [Concomitant]
     Active Substance: LEVOTHYROXINE
  13. SUCRALFATE. [Concomitant]
     Active Substance: SUCRALFATE
  14. VELETRI [Suspect]
     Active Substance: EPOPROSTENOL
     Dosage: 15 NG/KG, PER MIN
     Route: 042
  15. ATORVASTATIN [Concomitant]
     Active Substance: ATORVASTATIN
  16. ZYRTEC [Concomitant]
     Active Substance: CETIRIZINE HYDROCHLORIDE
  17. ALOGLIPTIN. [Concomitant]
     Active Substance: ALOGLIPTIN
     Dosage: UNK
  18. VITAMIN D3 [Concomitant]
     Active Substance: CHOLECALCIFEROL
  19. REVATIO [Concomitant]
     Active Substance: SILDENAFIL CITRATE
  20. FLUTICASONE. [Concomitant]
     Active Substance: FLUTICASONE
  21. CHOLECALCIFEROL [Concomitant]
     Active Substance: CHOLECALCIFEROL
  22. IBUPROFEN. [Concomitant]
     Active Substance: IBUPROFEN
     Indication: PAIN
  23. ROCEPHIN [Concomitant]
     Active Substance: CEFTRIAXONE SODIUM
     Dosage: UNK
     Dates: start: 20200224
  24. VELETRI [Suspect]
     Active Substance: EPOPROSTENOL
     Indication: PULMONARY ARTERIAL HYPERTENSION
     Dosage: 15 NG/KG, PER MIN
     Route: 042
  25. DULOXETINE. [Concomitant]
     Active Substance: DULOXETINE

REACTIONS (52)
  - Influenza A virus test positive [Recovered/Resolved]
  - Hypomagnesaemia [Recovered/Resolved]
  - Pyrexia [Recovered/Resolved]
  - Arthralgia [Unknown]
  - Arthropathy [Unknown]
  - Ear discomfort [Unknown]
  - Influenza [Recovered/Resolved]
  - Unevaluable event [Recovered/Resolved]
  - Oxygen consumption increased [Not Recovered/Not Resolved]
  - Dyspnoea exertional [Unknown]
  - Gait disturbance [Not Recovered/Not Resolved]
  - Fall [Unknown]
  - Bone pain [Unknown]
  - Constipation [Unknown]
  - Blood glucose increased [Unknown]
  - Ear infection [Unknown]
  - Tachycardia [Recovered/Resolved]
  - Blood calcium increased [Unknown]
  - Blood parathyroid hormone increased [Unknown]
  - Back pain [Unknown]
  - Pruritus [Unknown]
  - Swelling [Unknown]
  - Intervertebral disc protrusion [Unknown]
  - Depression [Unknown]
  - Blood alkaline phosphatase increased [Unknown]
  - Cough [Recovered/Resolved]
  - Dyspnoea [Recovered/Resolved]
  - Pain [Not Recovered/Not Resolved]
  - Nausea [Unknown]
  - Abdominal discomfort [Unknown]
  - Pain in jaw [Unknown]
  - Hypoacusis [Unknown]
  - Seizure [Unknown]
  - Urinary incontinence [Unknown]
  - Fatigue [Unknown]
  - Nasopharyngitis [Not Recovered/Not Resolved]
  - Sinusitis [Unknown]
  - Malaise [Unknown]
  - Pain in extremity [Recovered/Resolved]
  - Gastrooesophageal reflux disease [Unknown]
  - Peripheral swelling [Not Recovered/Not Resolved]
  - Weight decreased [Unknown]
  - Headache [Unknown]
  - Weight increased [Unknown]
  - Hypothyroidism [Unknown]
  - Diarrhoea [Not Recovered/Not Resolved]
  - Muscular weakness [Unknown]
  - Decreased appetite [Unknown]
  - Crying [Unknown]
  - Emotional disorder [Unknown]
  - Neck pain [Unknown]
  - Acute sinusitis [Unknown]

NARRATIVE: CASE EVENT DATE: 201906
